FAERS Safety Report 6554320-5 (Version None)
Quarter: 2010Q1

REPORT INFORMATION
  Report Type: 
  Country: None (occurrence: None)
  Receive Date: 20100125
  Receipt Date: 20100125
  Transmission Date: 20100710
  Serious: Yes (Hospitalization)
  Sender: FDA-Public Use
  Company Number: None

PATIENT
  Age: 39 Year
  Sex: Male
  Weight: 90.7194 kg

DRUGS (2)
  1. ENBREL [Suspect]
     Indication: PSORIASIS
     Dosage: SYRINGE INJECTION TWICE A WEEK SQ
     Route: 058
     Dates: start: 20021219, end: 20080508
  2. ENBREL [Suspect]
     Indication: PSORIATIC ARTHROPATHY
     Dosage: SYRINGE INJECTION TWICE A WEEK SQ
     Route: 058
     Dates: start: 20021219, end: 20080508

REACTIONS (4)
  - DYSGRAPHIA [None]
  - MOTOR DYSFUNCTION [None]
  - MULTIPLE SCLEROSIS [None]
  - TREMOR [None]
